FAERS Safety Report 16376391 (Version 1)
Quarter: 2019Q2

REPORT INFORMATION
  Report Type: Spontaneous
  Country: FR (occurrence: FR)
  Receive Date: 20190531
  Receipt Date: 20190531
  Transmission Date: 20190711
  Serious: Yes (Other)
  Sender: FDA-Public Use
  Company Number: FR-AUROBINDO-AUR-APL-2019-008341

PATIENT

DRUGS (4)
  1. PREDNISONE. [Suspect]
     Active Substance: PREDNISONE
     Indication: PLASMA CELL MYELOMA
     Dosage: UNK, DOSAGE FORM: UNSPECIFIED
     Route: 065
     Dates: start: 20150201, end: 20151101
  2. DEXAMETHASONE. [Suspect]
     Active Substance: DEXAMETHASONE
     Indication: PLASMA CELL MYELOMA
     Dosage: UNK, DOSAGE FORM: UNSPECIFIED
     Route: 065
     Dates: start: 20150201, end: 20151101
  3. MELPHALAN. [Suspect]
     Active Substance: MELPHALAN
     Indication: PLASMA CELL MYELOMA
     Dosage: UNK, DOSAGE FORM: UNSPECIFIED
     Route: 065
     Dates: start: 20150201, end: 20151101
  4. VELCADE [Suspect]
     Active Substance: BORTEZOMIB
     Indication: PLASMA CELL MYELOMA
     Dosage: 1.3 MILLIGRAM/SQ. METER, DOSAGE FORM: LYOPHILIZED POWDER
     Route: 065
     Dates: start: 20150201, end: 20151101

REACTIONS (3)
  - Plasma cell myeloma recurrent [Unknown]
  - Off label use [Unknown]
  - Intentional product misuse [Unknown]

NARRATIVE: CASE EVENT DATE: 20150201
